FAERS Safety Report 13177074 (Version 1)
Quarter: 2017Q1

REPORT INFORMATION
  Report Type: Report from Study
  Country: US (occurrence: US)
  Receive Date: 20170201
  Receipt Date: 20170201
  Transmission Date: 20170428
  Serious: No
  Sender: FDA-Public Use
  Company Number: US-EXELIXIS-CABO-16007077

PATIENT
  Sex: Female

DRUGS (18)
  1. SIMVASTATIN. [Concomitant]
     Active Substance: SIMVASTATIN
  2. SYNTHROID [Concomitant]
     Active Substance: LEVOTHYROXINE SODIUM
  3. PROTONIX [Concomitant]
     Active Substance: PANTOPRAZOLE SODIUM
  4. METOPROLOL. [Concomitant]
     Active Substance: METOPROLOL
  5. COSOPT [Concomitant]
     Active Substance: DORZOLAMIDE HYDROCHLORIDE\TIMOLOL MALEATE
  6. CLARITIN [Concomitant]
     Active Substance: LORATADINE
  7. MICARDIS [Concomitant]
     Active Substance: TELMISARTAN
  8. COMETRIQ [Suspect]
     Active Substance: CABOZANTINIB S-MALATE
     Indication: LUNG NEOPLASM MALIGNANT
     Dosage: 60 MG, QD
     Route: 048
     Dates: start: 20160505, end: 20160525
  9. DICLOFENAC [Concomitant]
     Active Substance: DICLOFENAC
  10. CRANBERRY. [Concomitant]
     Active Substance: CRANBERRY
  11. OSTEO BI-FLEX [Concomitant]
     Active Substance: CHONDROITIN SULFATE A\GLUCOSAMINE
  12. PRESERVISION [Concomitant]
     Active Substance: MINERALS\VITAMINS
  13. FISH OIL [Concomitant]
     Active Substance: FISH OIL
  14. PREDNISOLONE. [Concomitant]
     Active Substance: PREDNISOLONE
  15. COMETRIQ [Suspect]
     Active Substance: CABOZANTINIB S-MALATE
     Dosage: 60 MG, QD
     Route: 048
     Dates: start: 201606
  16. ASPIRIN. [Concomitant]
     Active Substance: ASPIRIN
  17. CALCIUM [Concomitant]
     Active Substance: CALCIUM
  18. MELOXICAM. [Concomitant]
     Active Substance: MELOXICAM

REACTIONS (3)
  - Throat lesion [Unknown]
  - Urinary tract infection [Unknown]
  - Off label use [Unknown]
